FAERS Safety Report 4853986-5 (Version None)
Quarter: 2005Q4

REPORT INFORMATION
  Report Type: 
  Country: None (occurrence: None)
  Receive Date: 20051213
  Receipt Date: 20051031
  Transmission Date: 20060501
  Serious: Yes (Life-Threatening)
  Sender: FDA-Public Use
  Company Number: 2005S1010676

PATIENT
  Age: 52 Year
  Sex: Female
  Weight: 70.7611 kg

DRUGS (6)
  1. CLOZAPINE [Suspect]
     Indication: SCHIZOAFFECTIVE DISORDER
     Dosage: 400 MG; HS; ORAL
     Route: 048
     Dates: start: 20040601, end: 20051025
  2. FLUOXETINE [Concomitant]
  3. METHYLPHENIDATE HCL [Concomitant]
  4. FUROSEMIDE [Concomitant]
  5. LANSOPRAZOLE [Concomitant]
  6. POTASSIUM CHLORIDE [Concomitant]

REACTIONS (6)
  - DIZZINESS [None]
  - GRANULOCYTOPENIA [None]
  - LEUKOPENIA [None]
  - LOSS OF CONSCIOUSNESS [None]
  - NAUSEA [None]
  - VOMITING [None]
